FAERS Safety Report 18870059 (Version 2)
Quarter: 2021Q1

REPORT INFORMATION
  Report Type: Report from Study
  Country: None (occurrence: US)
  Receive Date: 20210210
  Receipt Date: 20210223
  Transmission Date: 20210420
  Serious: Yes (Hospitalization, Other)
  Sender: FDA-Public Use
  Company Number: US-ABBVIE-21K-163-3765397-00

PATIENT
  Age: 76 Year
  Sex: Male
  Weight: 88.98 kg

DRUGS (1)
  1. CREON [Suspect]
     Active Substance: PANCRELIPASE AMYLASE\PANCRELIPASE LIPASE\PANCRELIPASE PROTEASE
     Indication: PANCREATIC CARCINOMA STAGE IV
     Dosage: 3 CAPSULES WITH MEALS AND 5 CAPSULES WITH EACH SNACK
     Route: 048
     Dates: start: 2019

REACTIONS (4)
  - Cholecystectomy [Unknown]
  - Anorectal operation [Unknown]
  - Abdominal pain [Recovered/Resolved]
  - Abdominal discomfort [Recovered/Resolved]

NARRATIVE: CASE EVENT DATE: 2020
